FAERS Safety Report 14859816 (Version 1)
Quarter: 2018Q2

REPORT INFORMATION
  Report Type: Spontaneous
  Country: US (occurrence: US)
  Receive Date: 20180421
  Receipt Date: 20180421
  Transmission Date: 20180711
  Serious: Yes (Disabling)
  Sender: FDA-Public Use
  Company Number: None

PATIENT
  Age: 30 Year
  Sex: Female
  Weight: 55.79 kg

DRUGS (6)
  1. ASPIRIN. [Concomitant]
     Active Substance: ASPIRIN
  2. IBUPROFEN. [Concomitant]
     Active Substance: IBUPROFEN
  3. CAFFEINE. [Concomitant]
     Active Substance: CAFFEINE
  4. TUMERIC [Concomitant]
     Active Substance: HERBALS\TURMERIC
  5. NEXPLANON [Suspect]
     Active Substance: ETONOGESTREL
     Dates: start: 20170426, end: 20180328
  6. PARACETAMOL [Concomitant]
     Active Substance: ACETAMINOPHEN

REACTIONS (4)
  - Anxiety [None]
  - Headache [None]
  - Depression [None]
  - Migraine [None]

NARRATIVE: CASE EVENT DATE: 20170426
